FAERS Safety Report 22644284 (Version 6)
Quarter: 2025Q1

REPORT INFORMATION
  Report Type: Report from Study
  Country: US (occurrence: US)
  Receive Date: 20230627
  Receipt Date: 20250213
  Transmission Date: 20250409
  Serious: Yes (Death, Hospitalization, Other)
  Sender: TAKEDA
  Company Number: US-TAKEDA-2022TUS064475

PATIENT
  Age: 72 Year
  Sex: Female

DRUGS (6)
  1. TEDUGLUTIDE [Suspect]
     Active Substance: TEDUGLUTIDE
     Indication: Short-bowel syndrome
     Dosage: 1.4 MILLIGRAM, QD
     Dates: start: 20220111
  2. TEDUGLUTIDE [Suspect]
     Active Substance: TEDUGLUTIDE
     Dosage: 1.4 MILLIGRAM, QD
     Dates: start: 20220117
  3. TEDUGLUTIDE [Suspect]
     Active Substance: TEDUGLUTIDE
     Dosage: 1.4 MILLIGRAM, QOD
  4. TEDUGLUTIDE [Suspect]
     Active Substance: TEDUGLUTIDE
     Dosage: 1.2 MILLIGRAM, QOD
  5. TEDUGLUTIDE [Suspect]
     Active Substance: TEDUGLUTIDE
     Dosage: 1.2 MILLIGRAM, QOD
  6. TEDUGLUTIDE [Suspect]
     Active Substance: TEDUGLUTIDE
     Dosage: 1.2 MILLIGRAM, QOD

REACTIONS (13)
  - Septic shock [Fatal]
  - Gastrointestinal bacterial infection [Fatal]
  - Haemorrhage [Not Recovered/Not Resolved]
  - Blood loss anaemia [Recovered/Resolved]
  - Pyrexia [Unknown]
  - Renal impairment [Unknown]
  - Muscle spasms [Unknown]
  - Blood creatinine abnormal [Unknown]
  - Blood osmolarity abnormal [Unknown]
  - Blood phosphorus abnormal [Unknown]
  - Blood potassium abnormal [Unknown]
  - Blood urea nitrogen/creatinine ratio increased [Unknown]
  - Product dose omission issue [Unknown]

NARRATIVE: CASE EVENT DATE: 20230901
